FAERS Safety Report 4459895-8 (Version None)
Quarter: 2004Q3

REPORT INFORMATION
  Report Type: 
  Country: None (occurrence: None)
  Receive Date: 20040928
  Receipt Date: 20030828
  Transmission Date: 20050211
  Serious: No
  Sender: FDA-Public Use
  Company Number: US-GLAXOSMITHKLINE-A0423994A

PATIENT
  Age: 70 Year
  Sex: Female

DRUGS (5)
  1. SEREVENT [Suspect]
     Dosage: 1PUFF TWICE PER DAY
     Route: 055
  2. SEREVENT [Suspect]
     Dosage: 2PUFF TWICE PER DAY
     Route: 055
  3. ALBUTEROL [Concomitant]
  4. ALDACTONE [Concomitant]
  5. ATARAX [Concomitant]

REACTIONS (3)
  - DYSPNOEA EXACERBATED [None]
  - MUSCLE CRAMP [None]
  - PHARMACEUTICAL PRODUCT COMPLAINT [None]
